FAERS Safety Report 15694431 (Version 3)
Quarter: 2019Q1

REPORT INFORMATION
  Report Type: Report from Study
  Country: AR (occurrence: AR)
  Receive Date: 20181206
  Receipt Date: 20190318
  Transmission Date: 20190417
  Serious: Yes (Hospitalization, Other)
  Sender: FDA-Public Use
  Company Number: AR-ACTELION-A-CH2018-182674

PATIENT
  Age: 59 Year
  Sex: Female
  Weight: 104 kg

DRUGS (1)
  1. OPSUMIT [Suspect]
     Active Substance: MACITENTAN
     Indication: PULMONARY ARTERIAL HYPERTENSION
     Dosage: 10 MG, QD
     Route: 048
     Dates: start: 201509

REACTIONS (10)
  - Malaise [Not Recovered/Not Resolved]
  - Pulmonary arterial wedge pressure increased [Not Recovered/Not Resolved]
  - Breast cancer [Not Recovered/Not Resolved]
  - Cancer surgery [Unknown]
  - Breast haemorrhage [Not Recovered/Not Resolved]
  - Breast operation [Unknown]
  - Transfusion [Not Recovered/Not Resolved]
  - Product supply issue [Unknown]
  - Thrombosis [Not Recovered/Not Resolved]
  - Effusion [Not Recovered/Not Resolved]

NARRATIVE: CASE EVENT DATE: 20190228
